FAERS Safety Report 14186471 (Version 1)
Quarter: 2017Q4

REPORT INFORMATION
  Report Type: Report from Study
  Country: CN (occurrence: CN)
  Receive Date: 20171114
  Receipt Date: 20171114
  Transmission Date: 20180321
  Serious: Yes (Death)
  Sender: FDA-Public Use
  Company Number: CN-ROCHE-2024592

PATIENT

DRUGS (4)
  1. CLOPIDOGREL [Concomitant]
     Active Substance: CLOPIDOGREL BISULFATE
  2. ALTEPLASE. [Suspect]
     Active Substance: ALTEPLASE
     Indication: CEREBRAL INFARCTION
     Dosage: 10% OF THE DOSE WAS INJECTED AT 10 MINUTES
     Route: 042
  3. ASPIRIN. [Concomitant]
     Active Substance: ASPIRIN
  4. ALTEPLASE. [Suspect]
     Active Substance: ALTEPLASE
     Dosage: REMAINING 90% DOSE DRIPPED WITHIN 1 HOUR AFTER 12 HOUR VIA INTRAVENOUS DRIP
     Route: 041

REACTIONS (1)
  - Haemorrhagic transformation stroke [Fatal]
